FAERS Safety Report 17454488 (Version 1)
Quarter: 2020Q1

REPORT INFORMATION
  Report Type: Spontaneous
  Country: US (occurrence: US)
  Receive Date: 20200225
  Receipt Date: 20200225
  Transmission Date: 20200409
  Serious: No
  Sender: FDA-Public Use
  Company Number: US-STRIDES ARCOLAB LIMITED-2020SP001401

PATIENT
  Age: 71 Year
  Sex: Male

DRUGS (2)
  1. RANITIDINE TABLETS, USP 300MG [Suspect]
     Active Substance: RANITIDINE
     Indication: GASTROOESOPHAGEAL REFLUX DISEASE
     Dosage: 150 MILLIGRAM IN THE MORNING (GLENMARK)
     Route: 065
  2. RANITIDINE TABLETS, USP 300MG [Suspect]
     Active Substance: RANITIDINE
     Dosage: 300 MILLIGRAM AT NIGHT (STRIDES)
     Route: 065

REACTIONS (1)
  - Therapy partial responder [Unknown]
